FAERS Safety Report 20469500 (Version 1)
Quarter: 2022Q1

REPORT INFORMATION
  Report Type: Spontaneous
  Country: US (occurrence: US)
  Receive Date: 20220214
  Receipt Date: 20220214
  Transmission Date: 20220424
  Serious: Yes (Death, Hospitalization, Other)
  Sender: FDA-Public Use
  Company Number: US-AMGEN-USASP2022023306

PATIENT
  Age: 73 Year
  Sex: Female
  Weight: 92.517 kg

DRUGS (4)
  1. NEUPOGEN [Suspect]
     Active Substance: FILGRASTIM
     Indication: Neutropenia
     Dosage: UNK
     Route: 065
  2. IBRANCE [Suspect]
     Active Substance: PALBOCICLIB
     Indication: Extramammary Paget^s disease
     Dosage: 125 MILLIGRAM, ONE DAY FOR 21 DAYS THEN OFF 7 DAYS AND REPEAT
     Route: 065
  3. LETROZOLE [Suspect]
     Active Substance: LETROZOLE
     Indication: Extramammary Paget^s disease
     Dosage: 2.5 MILLIGRAM, 1 TAB/DAY
     Route: 065
  4. DEXAMETHASONE [Suspect]
     Active Substance: DEXAMETHASONE
     Indication: Product used for unknown indication
     Route: 065

REACTIONS (7)
  - Escherichia infection [Fatal]
  - Septic shock [Fatal]
  - Renal impairment [Unknown]
  - Therapy non-responder [Unknown]
  - Peripheral swelling [Unknown]
  - Pain in extremity [Unknown]
  - Dyspnoea [Unknown]

NARRATIVE: CASE EVENT DATE: 20211230
